FAERS Safety Report 8916798 (Version 2)
Quarter: 2012Q4

REPORT INFORMATION
  Report Type: Report from Study
  Country: US (occurrence: US)
  Receive Date: 20121120
  Receipt Date: 20121126
  Transmission Date: 20130627
  Serious: Yes (Death)
  Sender: FDA-Public Use
  Company Number: US-ROCHE-1157489

PATIENT
  Sex: Male

DRUGS (11)
  1. VISMODEGIB [Suspect]
     Indication: PRODUCT USED FOR UNKNOWN INDICATION
     Route: 065
  2. DUONEB [Concomitant]
     Route: 065
  3. MEGACE [Concomitant]
     Route: 065
  4. FERROUS SULPHATE [Concomitant]
     Route: 065
  5. SPIRIVA [Concomitant]
     Route: 065
  6. FOLIC ACID [Concomitant]
     Route: 065
  7. NORCO [Concomitant]
     Route: 065
  8. SOLU-MEDROL [Concomitant]
     Route: 065
  9. XANAX [Concomitant]
     Route: 065
  10. ADVAIR [Concomitant]
     Route: 065
  11. LEVAQUIN [Concomitant]
     Route: 065

REACTIONS (1)
  - Death [Fatal]
